FAERS Safety Report 18548482 (Version 1)
Quarter: 2020Q4

REPORT INFORMATION
  Report Type: Spontaneous
  Country: CN (occurrence: CN)
  Receive Date: 20201125
  Receipt Date: 20201125
  Transmission Date: 20210114
  Serious: Yes (Other)
  Sender: FDA-Public Use
  Company Number: CN-ELI_LILLY_AND_COMPANY-CN202011009228

PATIENT
  Age: 62 Year
  Sex: Female
  Weight: 78 kg

DRUGS (1)
  1. HUMALOG MIX75/25 [Suspect]
     Active Substance: INSULIN LISPRO
     Indication: TYPE 2 DIABETES MELLITUS
     Dosage: UNK UNK, UNKNOWN
     Route: 058
     Dates: start: 20201103, end: 20201103

REACTIONS (7)
  - Pharyngeal disorder [Recovering/Resolving]
  - Laryngeal oedema [Recovering/Resolving]
  - Dyspnoea [Recovering/Resolving]
  - Rales [Recovering/Resolving]
  - Foaming at mouth [Recovering/Resolving]
  - Secretion discharge [Recovering/Resolving]
  - Pharyngeal swelling [Recovering/Resolving]

NARRATIVE: CASE EVENT DATE: 20201103
